FAERS Safety Report 10217326 (Version 3)
Quarter: 2014Q2

REPORT INFORMATION
  Report Type: Spontaneous
  Country: US (occurrence: US)
  Receive Date: 20140604
  Receipt Date: 20140617
  Transmission Date: 20141212
  Serious: Yes (Hospitalization, Other)
  Sender: FDA-Public Use
  Company Number: US-PFIZER INC-2014150792

PATIENT
  Age: 62 Year
  Sex: Male

DRUGS (12)
  1. AZITHROMYCIN [Suspect]
     Indication: BALAMUTHIA INFECTION
     Dosage: 20 MG/KG, 1X/DAY
     Route: 065
  2. FLUCONAZOLE [Suspect]
     Indication: BALAMUTHIA INFECTION
     Dosage: 400 MG, 1X/DAY
     Route: 065
  3. FLUCONAZOLE [Suspect]
     Indication: CRYPTOCOCCOSIS
     Dosage: UNK
     Route: 065
  4. SULFADIAZINE [Suspect]
     Indication: BALAMUTHIA INFECTION
     Dosage: 1.5 G, 4X/DAY
     Route: 065
  5. ALBENDAZOLE [Suspect]
     Indication: BALAMUTHIA INFECTION
     Dosage: 400 MG, 2X/DAY
     Route: 065
  6. PENTAMIDINE [Suspect]
     Indication: BALAMUTHIA INFECTION
     Dosage: 5 MG/KG, 1X/DAY
     Route: 042
  7. MILTEFOSINE [Suspect]
     Indication: BALAMUTHIA INFECTION
     Dosage: 50 MG, 3X/DAY
     Route: 042
  8. CYCLOSPORINE [Suspect]
     Indication: IMMUNOSUPPRESSION
     Dosage: UNK
     Route: 065
  9. MYCOPHENOLATE MOFETIL [Suspect]
     Indication: IMMUNOSUPPRESSION
     Dosage: UNK
     Route: 065
  10. PREDNISONE [Suspect]
     Indication: IMMUNOSUPPRESSION
     Dosage: UNK
     Route: 065
  11. BASILIXIMAB [Concomitant]
     Indication: IMMUNE TOLERANCE INDUCTION
     Dosage: UNK
  12. METHYLPREDNISOLONE [Concomitant]
     Indication: IMMUNE TOLERANCE INDUCTION
     Dosage: UNK

REACTIONS (6)
  - Weight decreased [Recovered/Resolved]
  - Vomiting [Unknown]
  - Nausea [Recovered/Resolved]
  - Renal failure acute [Recovered/Resolved]
  - Liver function test abnormal [Recovered/Resolved]
  - Decreased appetite [Recovered/Resolved]
